FAERS Safety Report 6837607-8 (Version None)
Quarter: 2010Q3

REPORT INFORMATION
  Report Type: 
  Country: None (occurrence: None)
  Receive Date: 20100713
  Receipt Date: 20070516
  Transmission Date: 20110219
  Serious: No
  Sender: FDA-Public Use
  Company Number: US-PFIZER INC-2007040765

PATIENT
  Sex: Female
  Weight: 77.1 kg

DRUGS (1)
  1. CHANTIX [Suspect]
     Indication: SMOKING CESSATION THERAPY
     Dates: start: 20070501

REACTIONS (6)
  - AGEUSIA [None]
  - DECREASED APPETITE [None]
  - DRY MOUTH [None]
  - DYSPEPSIA [None]
  - NASAL CONGESTION [None]
  - OROPHARYNGEAL PAIN [None]
